FAERS Safety Report 5739943-5 (Version None)
Quarter: 2008Q2

REPORT INFORMATION
  Report Type: 
  Country: None (occurrence: None)
  Receive Date: 20080513
  Receipt Date: 20080513
  Transmission Date: 20081010
  Serious: Yes (Hospitalization, Other)
  Sender: FDA-Public Use
  Company Number: None

PATIENT
  Age: 37 Year
  Sex: Female
  Weight: 113.3993 kg

DRUGS (1)
  1. TRAMADOL HCL [Suspect]
     Indication: PAIN
     Dosage: 50MG -2 TABS- Q4H PO; 2 TABS ONE TIME
     Route: 048
     Dates: start: 20080509, end: 20080509

REACTIONS (4)
  - CYANOSIS [None]
  - GRAND MAL CONVULSION [None]
  - NO REACTION ON PREVIOUS EXPOSURE TO DRUG [None]
  - TONGUE BITING [None]
